FAERS Safety Report 4776398-1 (Version None)
Quarter: 2005Q3

REPORT INFORMATION
  Report Type: 
  Country: None (occurrence: None)
  Receive Date: 20050921
  Receipt Date: 20050829
  Transmission Date: 20060218
  Serious: Yes (Hospitalization)
  Sender: FDA-Public Use
  Company Number: 2005RR-00685

PATIENT
  Age: 80 Year
  Sex: Female

DRUGS (5)
  1. METFORMIN HCL [Suspect]
  2. BISOPROLOL [Concomitant]
  3. TORSEMIDE [Concomitant]
  4. LERCANIDIPINE [Concomitant]
  5. GLUCOSAMINE [Concomitant]

REACTIONS (8)
  - BLOOD CREATININE DECREASED [None]
  - BLOOD GLUCOSE INCREASED [None]
  - BLOOD UREA INCREASED [None]
  - HAEMATOCRIT DECREASED [None]
  - HAEMOGLOBIN DECREASED [None]
  - HEPATITIS CHOLESTATIC [None]
  - MEAN CELL HAEMOGLOBIN DECREASED [None]
  - RED BLOOD CELL SEDIMENTATION RATE INCREASED [None]
